FAERS Safety Report 10673406 (Version 2)
Quarter: 2015Q2

REPORT INFORMATION
  Report Type: Spontaneous
  Country: US (occurrence: US)
  Receive Date: 20141224
  Receipt Date: 20150507
  Transmission Date: 20150821
  Serious: No
  Sender: FDA-Public Use
  Company Number: US-BIOGENIDEC-2014BI137155

PATIENT
  Age: 66 Year
  Sex: Female

DRUGS (9)
  1. TECFIDERA [Suspect]
     Active Substance: DIMETHYL FUMARATE
     Indication: MULTIPLE SCLEROSIS
     Route: 048
  2. TRAMADOL HCL [Concomitant]
     Active Substance: TRAMADOL HYDROCHLORIDE
  3. OMEPRAZOLE. [Concomitant]
     Active Substance: OMEPRAZOLE
  4. CYMBALTA [Concomitant]
     Active Substance: DULOXETINE HYDROCHLORIDE
  5. KLONOPIN [Concomitant]
     Active Substance: CLONAZEPAM
  6. SIMVASTATIN. [Concomitant]
     Active Substance: SIMVASTATIN
  7. METFORMIN HCL [Concomitant]
     Active Substance: METFORMIN HYDROCHLORIDE
  8. BACLOFEN. [Concomitant]
     Active Substance: BACLOFEN
  9. GABAPENTIN. [Concomitant]
     Active Substance: GABAPENTIN

REACTIONS (3)
  - Vaginal cyst [Unknown]
  - Melanocytic naevus [Unknown]
  - Alopecia [Unknown]
